FAERS Safety Report 9633607 (Version 2)
Quarter: 2013Q4

REPORT INFORMATION
  Report Type: Report from Study
  Country: AR (occurrence: AR)
  Receive Date: 20131021
  Receipt Date: 20131220
  Transmission Date: 20140711
  Serious: Yes (Death, Disabling)
  Sender: FDA-Public Use
  Company Number: AR-ABBVIE-13P-007-1159184-00

PATIENT
  Age: 76 Year
  Sex: Female

DRUGS (1)
  1. HUMIRA [Suspect]
     Indication: RHEUMATOID ARTHRITIS
     Route: 058
     Dates: start: 20120201

REACTIONS (3)
  - Bronchial disorder [Fatal]
  - Back pain [Fatal]
  - Pneumonia [Fatal]
